FAERS Safety Report 10069651 (Version 2)
Quarter: 2014Q2

REPORT INFORMATION
  Report Type: Spontaneous
  Country: JP (occurrence: JP)
  Receive Date: 20140410
  Receipt Date: 20140410
  Transmission Date: 20141212
  Serious: Yes (Hospitalization)
  Sender: FDA-Public Use
  Company Number: JP-AMGEN INC.-JPNSP2013090715

PATIENT
  Age: 68 Year
  Sex: Male
  Weight: 62 kg

DRUGS (3)
  1. GRAN [Suspect]
     Indication: MYELODYSPLASTIC SYNDROME TRANSFORMATION
     Dosage: 75 MUG, UNK
     Route: 058
     Dates: start: 20131028, end: 20131029
  2. CYLOCIDE [Concomitant]
     Indication: MYELODYSPLASTIC SYNDROME TRANSFORMATION
     Dosage: 16 MG, BID
     Route: 041
     Dates: start: 20131022, end: 20131101
  3. ACLARUBICIN HYDROCHLORIDE [Concomitant]
     Indication: MYELODYSPLASTIC SYNDROME TRANSFORMATION
     Dosage: 16 MG, QD
     Route: 041
     Dates: start: 20131022, end: 20131025

REACTIONS (2)
  - Pain in extremity [Recovered/Resolved]
  - Pyrexia [Recovered/Resolved]
